FAERS Safety Report 6483512-9 (Version None)
Quarter: 2009Q4

REPORT INFORMATION
  Report Type: 
  Country: None (occurrence: None)
  Receive Date: 20091208
  Receipt Date: 20091208
  Transmission Date: 20100525
  Serious: Yes (Hospitalization)
  Sender: FDA-Public Use
  Company Number: None

PATIENT
  Age: 63 Year
  Sex: Male

DRUGS (1)
  1. SIMVASTATIN [Suspect]
     Indication: HYPERLIPIDAEMIA
     Dosage: 80 MG HS PO
     Route: 048
     Dates: start: 20020722, end: 20090118

REACTIONS (7)
  - AZOTAEMIA [None]
  - CONFUSIONAL STATE [None]
  - DEPRESSED LEVEL OF CONSCIOUSNESS [None]
  - FALL [None]
  - HYPOTENSION [None]
  - RENAL FAILURE ACUTE [None]
  - RHABDOMYOLYSIS [None]
